FAERS Safety Report 9646481 (Version 1)
Quarter: 2013Q4

REPORT INFORMATION
  Report Type: Spontaneous
  Country: FR (occurrence: FR)
  Receive Date: 20131025
  Receipt Date: 20131025
  Transmission Date: 20140711
  Serious: Yes (Hospitalization)
  Sender: FDA-Public Use
  Company Number: FR-ABBVIE-13P-056-1161789-00

PATIENT
  Age: 1 Day
  Sex: Male

DRUGS (3)
  1. DEPAKOTE [Suspect]
     Indication: MATERNAL EXPOSURE TIMING UNSPECIFIED
     Route: 064
  2. THERALITE [Suspect]
     Indication: MATERNAL EXPOSURE TIMING UNSPECIFIED
     Route: 064
  3. SEROPLEX [Suspect]
     Indication: MATERNAL EXPOSURE TIMING UNSPECIFIED
     Route: 064

REACTIONS (6)
  - Portal vein thrombosis [Recovered/Resolved]
  - Foetal exposure during pregnancy [Unknown]
  - Tachycardia foetal [Unknown]
  - Bradycardia [Unknown]
  - Crying [Unknown]
  - Restlessness [Unknown]
